FAERS Safety Report 10647393 (Version 2)
Quarter: 2015Q1

REPORT INFORMATION
  Report Type: Report from Study
  Country: US (occurrence: US)
  Receive Date: 20141211
  Receipt Date: 20150121
  Transmission Date: 20150720
  Serious: Yes (Death, Hospitalization, Other)
  Sender: FDA-Public Use
  Company Number: US-ALEXION PHARMACEUTICALS INC.-A201404625

PATIENT

DRUGS (1)
  1. SOLIRIS [Suspect]
     Active Substance: ECULIZUMAB
     Indication: PRODUCT USED FOR UNKNOWN INDICATION
     Route: 042

REACTIONS (10)
  - Procedural complication [Fatal]
  - Osteoarthritis [Unknown]
  - Metabolic disorder [Unknown]
  - Internal hernia [Unknown]
  - Septic shock [Unknown]
  - Abdominal pain [Unknown]
  - Fibromyalgia [Unknown]
  - Fatigue [Unknown]
  - Weight decreased [Unknown]
  - Blood disorder [Unknown]

NARRATIVE: CASE EVENT DATE: 201412
